FAERS Safety Report 8114001-3 (Version None)
Quarter: 2012Q1

REPORT INFORMATION
  Report Type: 
  Country: None (occurrence: None)
  Receive Date: 20120203
  Receipt Date: 20120201
  Transmission Date: 20120608
  Serious: Yes (Hospitalization)
  Sender: FDA-Public Use
  Company Number: SE-MERCK-1111SWE00032

PATIENT
  Sex: Male

DRUGS (6)
  1. WARFARIN SODIUM [Concomitant]
     Route: 048
  2. ESCITALOPRAM OXALATE [Concomitant]
     Route: 048
  3. PROSCAR [Suspect]
     Route: 048
     Dates: start: 20030101
  4. SPIRONOLACTONE [Concomitant]
     Route: 048
  5. PLENDIL [Concomitant]
     Route: 048
  6. MIRTAZAPINE [Concomitant]
     Route: 065

REACTIONS (1)
  - ANXIETY [None]
